FAERS Safety Report 6598921-7 (Version None)
Quarter: 2010Q1

REPORT INFORMATION
  Report Type: 
  Country: None (occurrence: None)
  Receive Date: 20100224
  Receipt Date: 20090228
  Transmission Date: 20100710
  Serious: No
  Sender: FDA-Public Use
  Company Number: US-BRISTOL-MYERS SQUIBB COMPANY-14515712

PATIENT
  Age: 68 Year
  Sex: Female

DRUGS (8)
  1. METFORMIN HCL [Suspect]
     Indication: DIABETES MELLITUS
     Route: 048
     Dates: start: 20080101
  2. AVANDIA [Suspect]
     Indication: DIABETES MELLITUS
     Route: 048
  3. LYRICA [Concomitant]
  4. AMITIZA [Concomitant]
  5. CYMBALTA [Concomitant]
  6. REQUIP [Concomitant]
  7. TIZANIDINE HCL [Concomitant]
  8. VICODIN [Concomitant]

REACTIONS (1)
  - ALOPECIA [None]
